FAERS Safety Report 5550951-X (Version None)
Quarter: 2007Q4

REPORT INFORMATION
  Report Type: 
  Country: None (occurrence: None)
  Receive Date: 20071128
  Receipt Date: 20070925
  Transmission Date: 20080405
  Serious: Yes (Other)
  Sender: FDA-Public Use
  Company Number: 2007080263

PATIENT
  Age: 31 Year
  Sex: Male

DRUGS (5)
  1. LIPITOR [Suspect]
  2. CLONAZEPAM [Suspect]
  3. PAXIL [Suspect]
  4. TOPROL-XL [Suspect]
  5. WELLBUTRIN [Suspect]

REACTIONS (2)
  - DRUG INTERACTION [None]
  - LIVER FUNCTION TEST ABNORMAL [None]
